FAERS Safety Report 10870709 (Version 3)
Quarter: 2015Q4

REPORT INFORMATION
  Report Type: Spontaneous
  Country: US (occurrence: US)
  Receive Date: 20150226
  Receipt Date: 20151113
  Transmission Date: 20160304
  Serious: Yes (Hospitalization, Other)
  Sender: FDA-Public Use
  Company Number: US-BAYER-2015-028082

PATIENT
  Age: 22 Year
  Sex: Female

DRUGS (1)
  1. MIRENA [Suspect]
     Active Substance: LEVONORGESTREL
     Indication: CONTRACEPTION
     Dosage: 20 MCG/24HR, CONT
     Route: 015
     Dates: start: 20081008, end: 20131011

REACTIONS (8)
  - Abdominal pain lower [None]
  - Device difficult to use [None]
  - Injury [None]
  - Sepsis [None]
  - Embedded device [None]
  - Pelvic pain [None]
  - Device dislocation [None]
  - Infection [None]

NARRATIVE: CASE EVENT DATE: 20130918
